FAERS Safety Report 18522559 (Version 3)
Quarter: 2021Q1

REPORT INFORMATION
  Report Type: Report from Study
  Country: US (occurrence: US)
  Receive Date: 20201119
  Receipt Date: 20210317
  Transmission Date: 20210419
  Serious: Yes (Other)
  Sender: FDA-Public Use
  Company Number: US-BIOVITRUM-2020US6378

PATIENT
  Age: 73 Year
  Sex: Male

DRUGS (1)
  1. KINERET [Suspect]
     Active Substance: ANAKINRA
     Indication: STILL^S DISEASE
     Route: 058
     Dates: start: 20201028, end: 20210309

REACTIONS (7)
  - Still^s disease [Unknown]
  - Condition aggravated [Unknown]
  - Pneumonia [Unknown]
  - Dyspnoea [Unknown]
  - Off label use [Recovered/Resolved]
  - Cough [Unknown]
  - Malaise [Unknown]

NARRATIVE: CASE EVENT DATE: 20201028
